APPROVED DRUG PRODUCT: MOTRIN
Active Ingredient: IBUPROFEN
Strength: 300MG **Federal Register determination that product was not discontinued or withdrawn for safety or effectiveness reasons**
Dosage Form/Route: TABLET;ORAL
Application: N017463 | Product #003
Applicant: MCNEIL CONSUMER HEALTHCARE DIV MCNEIL PPC INC
Approved: Approved Prior to Jan 1, 1982 | RLD: Yes | RS: No | Type: DISCN